FAERS Safety Report 4622085-X (Version None)
Quarter: 2005Q1

REPORT INFORMATION
  Report Type: 
  Country: None (occurrence: None)
  Receive Date: 20050328
  Receipt Date: 20050318
  Transmission Date: 20050727
  Serious: Yes (Hospitalization)
  Sender: FDA-Public Use
  Company Number: KII-2005-0015531

PATIENT
  Age: 27 Year
  Sex: Female

DRUGS (4)
  1. OXYCONTIN [Suspect]
     Indication: DRUG USE FOR UNKNOWN INDICATION
     Dosage: ORAL
     Route: 048
  2. ANTIPSYCHOTICS () [Suspect]
     Indication: DRUG USE FOR UNKNOWN INDICATION
     Dosage: SEE TEXT, ORAL
     Route: 048
  3. BENZODIAZEPINE DERIVATIVE(S) [Suspect]
     Indication: DRUG USE FOR UNKNOWN INDICATION
     Dosage: ORAL
     Route: 048
  4. ETHANOL (ETHANOL) [Suspect]
     Indication: DRUG USE FOR UNKNOWN INDICATION
     Dosage: SEE TEXT, ORAL
     Route: 048

REACTIONS (9)
  - AGITATION [None]
  - BRADYCARDIA [None]
  - ELECTROCARDIOGRAM QT CORRECTED INTERVAL PROLONGED [None]
  - HEART RATE INCREASED [None]
  - HYPOKALAEMIA [None]
  - HYPOTENSION [None]
  - LETHARGY [None]
  - MULTIPLE DRUG OVERDOSE [None]
  - SOMNOLENCE [None]
